FAERS Safety Report 10154097 (Version 1)
Quarter: 2014Q2

REPORT INFORMATION
  Report Type: Spontaneous
  Country: US (occurrence: None)
  Receive Date: 20140502
  Receipt Date: 20140502
  Transmission Date: 20141212
  Serious: Yes (Hospitalization)
  Sender: FDA-Public Use
  Company Number: 2314507

PATIENT
  Age: 93 Year
  Sex: Female
  Weight: 40.9 kg

DRUGS (2)
  1. PROPOFOL [Suspect]
     Indication: ANAESTHESIA
     Route: 042
     Dates: start: 201403
  2. FENTANYL [Concomitant]

REACTIONS (6)
  - Blood pressure abnormal [None]
  - Heart rate increased [None]
  - Anaemia [None]
  - Infection [None]
  - Asthenia [None]
  - Dysstasia [None]
